FAERS Safety Report 5317834-1 (Version None)
Quarter: 2007Q2

REPORT INFORMATION
  Report Type: 
  Country: None (occurrence: None)
  Receive Date: 20070502
  Receipt Date: 20070502
  Transmission Date: 20071010
  Serious: Yes (Other)
  Sender: FDA-Public Use
  Company Number: None

PATIENT
  Age: 64 Year
  Sex: Female
  Weight: 72.5755 kg

DRUGS (2)
  1. DACOGEN [Suspect]
     Indication: MYELODYSPLASTIC SYNDROME
     Dosage: SEE IMAGE
  2. DACOGEN [Suspect]
     Indication: REFRACTORY ANAEMIA WITH AN EXCESS OF BLASTS
     Dosage: SEE IMAGE

REACTIONS (6)
  - ASTHENIA [None]
  - HYPOAESTHESIA [None]
  - JOINT SWELLING [None]
  - NEUROPATHY [None]
  - PAIN IN EXTREMITY [None]
  - PERONEAL NERVE PALSY [None]
